FAERS Safety Report 16423000 (Version 3)
Quarter: 2019Q4

REPORT INFORMATION
  Report Type: Spontaneous
  Country: US (occurrence: US)
  Receive Date: 20190612
  Receipt Date: 20191001
  Transmission Date: 20200122
  Serious: Yes (Other)
  Sender: FDA-Public Use
  Company Number: US-009507513-1906USA001615

PATIENT
  Age: 80 Year
  Sex: Female
  Weight: 97.52 kg

DRUGS (3)
  1. COZAAR [Suspect]
     Active Substance: LOSARTAN POTASSIUM
     Indication: HYPERTENSION
     Dosage: 100MG TABLET-1 TABLET, ONCE DAILY IN THE MORNING/100MG TABLET-1 TABLET TAKEN BY MOUTH ONCE DAILY IN
     Route: 048
     Dates: start: 201901
  2. AMLODIPINE [Concomitant]
     Active Substance: AMLODIPINE BESYLATE
     Indication: HYPERTENSION
     Dosage: 10MG TABLET-1 TABLET ONCE DAILY IN THE EVENING
     Route: 048
     Dates: start: 20190409
  3. LEVOTHYROXINE SODIUM. [Concomitant]
     Active Substance: LEVOTHYROXINE SODIUM
     Indication: THYROID DISORDER
     Dosage: 50MCG TABLET-1 TABLET  DAILY 6 DAYS/WEEK;2 TABLETS  1 DAY/WEEK
     Route: 048

REACTIONS (4)
  - Back pain [Not Recovered/Not Resolved]
  - Neuropathy peripheral [Not Recovered/Not Resolved]
  - Joint swelling [Recovering/Resolving]
  - Atrial fibrillation [Unknown]

NARRATIVE: CASE EVENT DATE: 2019
